FAERS Safety Report 4949495-5 (Version None)
Quarter: 2006Q1

REPORT INFORMATION
  Report Type: 
  Country: None (occurrence: None)
  Receive Date: 20060127
  Receipt Date: 20050420
  Transmission Date: 20060701
  Serious: Yes (Hospitalization, Other)
  Sender: FDA-Public Use
  Company Number: 05-04-0656

PATIENT
  Age: 51 Year
  Sex: Male
  Weight: 88 kg

DRUGS (17)
  1. CLOZAPINE [Suspect]
     Indication: PARANOIA
     Dosage: 350MG QD, ORAL
     Route: 048
     Dates: start: 20041229, end: 20050420
  2. CLOZAPINE [Suspect]
     Indication: SCHIZOPHRENIA
     Dosage: 350MG QD, ORAL
     Route: 048
     Dates: start: 20041229, end: 20050420
  3. TYLENOL [Concomitant]
  4. PROVENTIL [Concomitant]
  5. ALBUTEROL SULFATE [Concomitant]
  6. ELAVIL [Concomitant]
  7. ATROVENT [Concomitant]
  8. SYNTHROID [Concomitant]
  9. MAALOX PLUS (MAALOX PLUS) [Concomitant]
  10. MILK OF MAGNESIA TAB [Concomitant]
  11. RISPERDAL [Concomitant]
  12. THEOPHYLLINE [Concomitant]
  13. VALPROIC ACID [Concomitant]
  14. ZAFIRLUKAST (ZAFIRLUKAST) [Concomitant]
  15. GEODON [Concomitant]
  16. DOCUSATE SODIUM (DOCUSATE SODIUM) [Concomitant]
  17. ACCOLATE [Concomitant]

REACTIONS (1)
  - AGRANULOCYTOSIS [None]
